FAERS Safety Report 4939206-1 (Version None)
Quarter: 2006Q1

REPORT INFORMATION
  Report Type: 
  Country: None (occurrence: None)
  Receive Date: 20060309
  Receipt Date: 20060309
  Transmission Date: 20060701
  Serious: Yes (Life-Threatening, Hospitalization, Disabling)
  Sender: FDA-Public Use
  Company Number: None

PATIENT
  Age: 16 Year
  Sex: Male
  Weight: 99.7913 kg

DRUGS (2)
  1. AMBIEN [Suspect]
     Indication: INSOMNIA
     Dosage: 1   HS  PRN  PO
     Route: 048
     Dates: start: 20030705, end: 20030801
  2. CELEXA [Concomitant]

REACTIONS (8)
  - ABNORMAL BEHAVIOUR [None]
  - CONFUSIONAL STATE [None]
  - DISORIENTATION [None]
  - DRUG INEFFECTIVE [None]
  - GRAND MAL CONVULSION [None]
  - HALLUCINATION [None]
  - MULTIPLE DRUG OVERDOSE [None]
  - SELF INJURIOUS BEHAVIOUR [None]
